FAERS Safety Report 12645179 (Version 6)
Quarter: 2016Q4

REPORT INFORMATION
  Report Type: Spontaneous
  Country: US (occurrence: US)
  Receive Date: 20160811
  Receipt Date: 20161021
  Transmission Date: 20170207
  Serious: Yes (Hospitalization, Other)
  Sender: FDA-Public Use
  Company Number: US-JNJFOC-20160804391

PATIENT
  Age: 69 Year
  Sex: Female
  Weight: 91.63 kg

DRUGS (22)
  1. XARELTO [Suspect]
     Active Substance: RIVAROXABAN
     Indication: TRANSIENT ISCHAEMIC ATTACK
     Dosage: EVENINGS
     Route: 048
     Dates: start: 20150504, end: 20160606
  2. PREDNISONE. [Suspect]
     Active Substance: PREDNISONE
     Indication: ASTHMA
     Route: 065
     Dates: start: 20141210
  3. ZYRTEC [Concomitant]
     Active Substance: CETIRIZINE HYDROCHLORIDE
     Indication: MULTIPLE ALLERGIES
     Route: 065
     Dates: start: 20140305
  4. UMECLIDINIUM W/VILANTEROL [Concomitant]
     Indication: RESPIRATORY DISORDER
     Route: 065
  5. VITAMIN D [Concomitant]
     Active Substance: CHOLECALCIFEROL
     Indication: OSTEOPOROSIS
     Route: 065
  6. BABY ASPIRIN [Concomitant]
     Active Substance: ASPIRIN
     Indication: TRANSIENT ISCHAEMIC ATTACK
     Route: 065
  7. XARELTO [Suspect]
     Active Substance: RIVAROXABAN
     Indication: DEEP VEIN THROMBOSIS
     Dosage: EVENINGS
     Route: 048
     Dates: start: 20150504, end: 20160606
  8. XARELTO [Suspect]
     Active Substance: RIVAROXABAN
     Indication: PULMONARY EMBOLISM
     Dosage: EVENINGS
     Route: 048
     Dates: start: 20150504, end: 20160606
  9. MONTELUKAST [Concomitant]
     Active Substance: MONTELUKAST SODIUM
     Indication: ASTHMA
     Route: 065
  10. VITAMIN D3 [Concomitant]
     Active Substance: CHOLECALCIFEROL
     Indication: OSTEOPOROSIS
     Route: 065
     Dates: start: 20141230
  11. XARELTO [Suspect]
     Active Substance: RIVAROXABAN
     Indication: PULMONARY EMBOLISM
     Route: 048
     Dates: start: 20121217, end: 20130630
  12. RIBOFLAVIN [Concomitant]
     Active Substance: RIBOFLAVIN
     Indication: TRANSIENT ISCHAEMIC ATTACK
     Route: 065
     Dates: start: 201602
  13. XARELTO [Suspect]
     Active Substance: RIVAROXABAN
     Indication: COAGULATION FACTOR VIII LEVEL INCREASED
     Route: 048
     Dates: start: 20121217, end: 20130630
  14. CALCIUM [Concomitant]
     Active Substance: CALCIUM
     Indication: OSTEOPOROSIS
     Route: 065
     Dates: start: 20141230
  15. MONTELUKAST [Concomitant]
     Active Substance: MONTELUKAST SODIUM
     Indication: MULTIPLE ALLERGIES
     Route: 065
  16. XARELTO [Suspect]
     Active Substance: RIVAROXABAN
     Indication: COAGULATION FACTOR VIII LEVEL INCREASED
     Dosage: EVENINGS
     Route: 048
     Dates: start: 20150504, end: 20160606
  17. XARELTO [Suspect]
     Active Substance: RIVAROXABAN
     Indication: DEEP VEIN THROMBOSIS
     Route: 048
     Dates: start: 20121217, end: 20130630
  18. XARELTO [Suspect]
     Active Substance: RIVAROXABAN
     Indication: TRANSIENT ISCHAEMIC ATTACK
     Route: 048
     Dates: start: 20121217, end: 20130630
  19. PREDNISONE. [Suspect]
     Active Substance: PREDNISONE
     Indication: LUNG DISORDER
     Route: 065
     Dates: start: 20141210
  20. ZYRTEC [Concomitant]
     Active Substance: CETIRIZINE HYDROCHLORIDE
     Indication: ASTHMA
     Route: 065
     Dates: start: 20140305
  21. SALBUTAMOL SULFATE [Concomitant]
     Active Substance: ALBUTEROL SULFATE
     Indication: RESPIRATORY DISORDER
     Dosage: 2.5 MG/3ML
     Route: 065
  22. SYMBICORT [Concomitant]
     Active Substance: BUDESONIDE\FORMOTEROL FUMARATE DIHYDRATE
     Indication: RESPIRATORY DISORDER
     Dosage: 160/45
     Route: 065

REACTIONS (10)
  - Pulmonary embolism [Recovered/Resolved with Sequelae]
  - Body height decreased [Not Recovered/Not Resolved]
  - Respiratory syncytial virus infection [Recovered/Resolved]
  - Product use issue [Unknown]
  - Treatment failure [Unknown]
  - Lower respiratory tract infection viral [Unknown]
  - Weight increased [Unknown]
  - Pneumonia [Recovered/Resolved]
  - Upper respiratory tract infection [Recovered/Resolved]
  - Off label use [Unknown]

NARRATIVE: CASE EVENT DATE: 2015
